FAERS Safety Report 18663269 (Version 3)
Quarter: 2021Q1

REPORT INFORMATION
  Report Type: Report from Study
  Country: BR (occurrence: BR)
  Receive Date: 20201224
  Receipt Date: 20210106
  Transmission Date: 20210419
  Serious: Yes (Death, Hospitalization, Other)
  Sender: FDA-Public Use
  Company Number: NVSC2020BR341674

PATIENT
  Age: 65 Year
  Sex: Male
  Weight: 68 kg

DRUGS (4)
  1. INSULIN, REGULAR [Concomitant]
     Active Substance: INSULIN NOS
     Indication: DIABETES MELLITUS
     Dosage: UNK (STARTED AT THE AGE OF 35)
     Route: 058
  2. CARVEDILOL. [Concomitant]
     Active Substance: CARVEDILOL
     Indication: MYOCARDIAL INFARCTION
     Dosage: 1 DF, QD
     Route: 048
     Dates: start: 2017
  3. COSENTYX [Suspect]
     Active Substance: SECUKINUMAB
     Indication: PSORIATIC ARTHROPATHY
     Dosage: 2 DF, QMO
     Route: 058
     Dates: start: 20191106
  4. VASTAREL [Concomitant]
     Active Substance: TRIMETAZIDINE DIHYDROCHLORIDE
     Indication: MYOCARDIAL INFARCTION
     Dosage: 1 DF, QD
     Route: 048
     Dates: start: 2017

REACTIONS (11)
  - Feeling abnormal [Not Recovered/Not Resolved]
  - Malaise [Not Recovered/Not Resolved]
  - Pulmonary oedema [Fatal]
  - Diarrhoea [Not Recovered/Not Resolved]
  - Dyspnoea [Not Recovered/Not Resolved]
  - Hepatic cancer [Not Recovered/Not Resolved]
  - Thrombosis [Fatal]
  - Intracardiac thrombus [Fatal]
  - Abdominal pain [Not Recovered/Not Resolved]
  - Pulmonary thrombosis [Fatal]
  - Fatigue [Not Recovered/Not Resolved]

NARRATIVE: CASE EVENT DATE: 2020
